FAERS Safety Report 7425582-7 (Version None)
Quarter: 2011Q2

REPORT INFORMATION
  Report Type: 
  Country: None (occurrence: None)
  Receive Date: 20110420
  Receipt Date: 20100526
  Transmission Date: 20111010
  Serious: No
  Sender: FDA-Public Use
  Company Number: US-ASTRAZENECA-2010SE24472

PATIENT
  Sex: Male

DRUGS (1)
  1. CASODEX [Suspect]
     Route: 048
     Dates: start: 20100522

REACTIONS (4)
  - MALAISE [None]
  - VOMITING [None]
  - APHAGIA [None]
  - DRUG DOSE OMISSION [None]
